FAERS Safety Report 11993351 (Version 1)
Quarter: 2016Q1

REPORT INFORMATION
  Report Type: Spontaneous
  Country: US (occurrence: None)
  Receive Date: 20160202
  Receipt Date: 20160202
  Transmission Date: 20160526
  Serious: No
  Sender: FDA-Public Use
  Company Number: None

PATIENT
  Age: 57 Year
  Sex: Male

DRUGS (1)
  1. EXJADE [Suspect]
     Active Substance: DEFERASIROX
     Indication: IRON OVERLOAD
     Dosage: 500MG DISSOLVE 4TAB IN 7OZ OF H2O + DRINK QD PO
     Route: 048
     Dates: start: 20150709

REACTIONS (2)
  - Abdominal pain upper [None]
  - Malaise [None]

NARRATIVE: CASE EVENT DATE: 201601
